FAERS Safety Report 20388911 (Version 3)
Quarter: 2022Q1

REPORT INFORMATION
  Report Type: Report from Study
  Country: US (occurrence: US)
  Receive Date: 20220128
  Receipt Date: 20220322
  Transmission Date: 20220423
  Serious: No
  Sender: FDA-Public Use
  Company Number: US-NOVARTISTESTPH-NVSC2022US017920

PATIENT
  Sex: Male

DRUGS (1)
  1. ENTRESTO [Suspect]
     Active Substance: SACUBITRIL\VALSARTAN
     Indication: Product used for unknown indication
     Dosage: 24/26 MG, BID
     Route: 048
     Dates: start: 20220122

REACTIONS (6)
  - Sinusitis [Unknown]
  - Rhinorrhoea [Unknown]
  - Throat clearing [Unknown]
  - Gait inability [Recovering/Resolving]
  - Blood pressure diastolic decreased [Recovering/Resolving]
  - Cough [Unknown]
